FAERS Safety Report 17120488 (Version 3)
Quarter: 2020Q4

REPORT INFORMATION
  Report Type: Report from Study
  Country: GB (occurrence: GB)
  Receive Date: 20191206
  Receipt Date: 20201120
  Transmission Date: 20210113
  Serious: Yes (Hospitalization)
  Sender: FDA-Public Use
  Company Number: GB-TAIHO ONCOLOGY  INC-IM-2019-00620

PATIENT
  Age: 66 Year
  Sex: Male
  Weight: 116.5 kg

DRUGS (9)
  1. TAMSULOSIN [Concomitant]
     Active Substance: TAMSULOSIN
     Indication: PROSTATOMEGALY
     Dosage: 400 UG, QD
     Route: 048
     Dates: start: 201811
  2. BEVACIZUMAB. [Suspect]
     Active Substance: BEVACIZUMAB
     Indication: ADENOCARCINOMA OF COLON
     Dosage: 604 MG (5 MG/KG), ON DAYS 1 AND 15 OF EACH 28- DAY CYCLE
     Route: 042
     Dates: start: 20190924, end: 20190924
  3. LONSURF [Suspect]
     Active Substance: TIPIRACIL HYDROCHLORIDE\TRIFLURIDINE
     Dosage: 70 MG (30 MG/M2), BID, ON DAYS 1-5 AND 8-12 OF EACH 28-DAY CYCLE
     Route: 048
     Dates: start: 20191126, end: 20191205
  4. BEVACIZUMAB. [Suspect]
     Active Substance: BEVACIZUMAB
     Dosage: 565.5 MG (5 MG/KG), ON DAYS 1 AND 15 OF EACH 28- DAY CYCLE
     Route: 042
     Dates: start: 20191126, end: 20191126
  5. MORPHINE SULFATE. [Concomitant]
     Active Substance: MORPHINE SULFATE
     Indication: SCOLIOSIS
     Dosage: 90 MG, QD
     Route: 048
     Dates: start: 2014
  6. LONSURF [Suspect]
     Active Substance: TIPIRACIL HYDROCHLORIDE\TRIFLURIDINE
     Indication: ADENOCARCINOMA OF COLON
     Dosage: 80 MG (35 MG/M2), BID, ON DAYS 1-5 AND 8-12 OF EACH 28-DAY CYCLE
     Route: 048
     Dates: start: 20190924, end: 20191031
  7. BEVACIZUMAB. [Suspect]
     Active Substance: BEVACIZUMAB
     Dosage: 582.5 MG (5 MG/KG), ON DAYS 1 AND 15 OF EACH 28- DAY CYCLE
     Route: 042
     Dates: start: 20191022, end: 20191022
  8. PREGABALIN. [Concomitant]
     Active Substance: PREGABALIN
     Indication: SCOLIOSIS
     Dosage: 150 MG, QD
     Route: 048
     Dates: start: 2017, end: 20191228
  9. COCODAMOL [Concomitant]
     Active Substance: ACETAMINOPHEN\CODEINE PHOSPHATE
     Indication: SCOLIOSIS
     Dosage: 500 MG, PRN
     Route: 048
     Dates: start: 1992, end: 20191104

REACTIONS (3)
  - Diarrhoea [Recovered/Resolved]
  - Dehydration [Recovered/Resolved]
  - Nausea [Recovered/Resolved]

NARRATIVE: CASE EVENT DATE: 20191023
